FAERS Safety Report 20421477 (Version 1)
Quarter: 2022Q1

REPORT INFORMATION
  Report Type: Spontaneous
  Country: US (occurrence: US)
  Receive Date: 20220203
  Receipt Date: 20220203
  Transmission Date: 20220424
  Serious: Yes (Hospitalization)
  Sender: FDA-Public Use
  Company Number: US-CELGENE-USA-20220200255

PATIENT
  Sex: Male
  Weight: 63.560 kg

DRUGS (2)
  1. REVLIMID [Suspect]
     Active Substance: LENALIDOMIDE
     Indication: Ductal adenocarcinoma of pancreas
     Dosage: 10 MILLIGRAM
     Route: 048
     Dates: start: 20211209
  2. REVLIMID [Suspect]
     Active Substance: LENALIDOMIDE
     Indication: Plasma cell myeloma

REACTIONS (4)
  - Constipation [Unknown]
  - Platelet count decreased [Unknown]
  - Fatigue [Unknown]
  - Nausea [Unknown]
